FAERS Safety Report 20244526 (Version 2)
Quarter: 2023Q1

REPORT INFORMATION
  Report Type: Spontaneous
  Country: US (occurrence: US)
  Receive Date: 20211229
  Receipt Date: 20230106
  Transmission Date: 20230418
  Serious: Yes (Other)
  Sender: FDA-Public Use
  Company Number: US-COOPERSURGICAL, INC.-US-2021CPS003458

PATIENT
  Sex: Female

DRUGS (1)
  1. PARAGARD T 380A [Suspect]
     Active Substance: COPPER
     Indication: Contraception
     Dosage: UNK
     Route: 015
     Dates: start: 20210929, end: 20211103

REACTIONS (7)
  - Embedded device [Recovered/Resolved]
  - Device issue [Recovered/Resolved]
  - Device expulsion [Recovered/Resolved]
  - Abdominal pain [Recovered/Resolved]
  - Abnormal uterine bleeding [Recovered/Resolved]
  - Pelvic pain [Recovered/Resolved]
  - Vaginal discharge [Recovered/Resolved]

NARRATIVE: CASE EVENT DATE: 20210101
